FAERS Safety Report 9504500 (Version 1)
Quarter: 2013Q3

REPORT INFORMATION
  Report Type: Spontaneous
  Country: US (occurrence: US)
  Receive Date: 20130906
  Receipt Date: 20130906
  Transmission Date: 20140515
  Serious: No
  Sender: FDA-Public Use
  Company Number: US-009507513-1309USA000473

PATIENT
  Age: 60 Year
  Sex: Female

DRUGS (5)
  1. DULERA [Suspect]
     Indication: CHRONIC OBSTRUCTIVE PULMONARY DISEASE
     Dosage: 2 PUFFS /TWICE DAILY
     Route: 055
     Dates: start: 20130823, end: 201308
  2. DULERA [Suspect]
     Dosage: ONE PUFF A DAY
     Route: 055
     Dates: start: 201308, end: 2013
  3. PAXIL [Concomitant]
  4. XANAX [Concomitant]
  5. TYLENOL [Concomitant]

REACTIONS (1)
  - Muscle spasms [Recovering/Resolving]
